FAERS Safety Report 25571102 (Version 3)
Quarter: 2025Q3

REPORT INFORMATION
  Report Type: Report from Study
  Country: US (occurrence: US)
  Receive Date: 20250717
  Receipt Date: 20250903
  Transmission Date: 20251021
  Serious: No
  Sender: SUNOVION
  Company Number: US-SUMITOMO PHARMA SWITZERLAND GMBH-2025SPA008419

PATIENT
  Age: 68 Year
  Sex: Male

DRUGS (8)
  1. ORGOVYX [Suspect]
     Active Substance: RELUGOLIX
     Indication: Prostate cancer
     Route: 048
     Dates: start: 20250629, end: 20250629
  2. ORGOVYX [Suspect]
     Active Substance: RELUGOLIX
     Route: 048
  3. ORGOVYX [Suspect]
     Active Substance: RELUGOLIX
     Route: 048
     Dates: start: 20250701, end: 20250701
  4. ORGOVYX [Suspect]
     Active Substance: RELUGOLIX
     Route: 048
  5. ABIRATERONE ACETATE [Concomitant]
     Active Substance: ABIRATERONE ACETATE
     Dosage: 1000 MG, QD
  6. ABIRATERONE ACETATE [Concomitant]
     Active Substance: ABIRATERONE ACETATE
  7. Mullein [Concomitant]
  8. PREDNISONE [Concomitant]
     Active Substance: PREDNISONE
     Dosage: 5 MG, BID

REACTIONS (8)
  - Feeling abnormal [Unknown]
  - Head discomfort [Unknown]
  - Fall [Unknown]
  - Dyspepsia [Unknown]
  - Abdominal pain upper [Unknown]
  - Dizziness [Unknown]
  - Night sweats [Unknown]
  - Hot flush [Unknown]
